FAERS Safety Report 19083748 (Version 7)
Quarter: 2025Q3

REPORT INFORMATION
  Report Type: Report from Study
  Country: EU (occurrence: EU)
  Receive Date: 20210401
  Receipt Date: 20250702
  Transmission Date: 20251020
  Serious: Yes (Hospitalization, Other)
  Sender: NOVARTIS
  Company Number: EU-NOVARTISPH-NVSC2021DE070211

PATIENT
  Sex: Male

DRUGS (15)
  1. COSENTYX [Suspect]
     Active Substance: SECUKINUMAB
     Indication: Psoriatic arthropathy
     Dosage: 150 MG, QMO (INJECTION)
     Route: 042
     Dates: start: 20180803, end: 20200406
  2. COSENTYX [Suspect]
     Active Substance: SECUKINUMAB
     Dosage: 300 MG, QMO (INJECTION)
     Route: 042
     Dates: start: 20200407, end: 20200506
  3. COSENTYX [Suspect]
     Active Substance: SECUKINUMAB
     Dosage: 150 MG, QMO
     Route: 065
     Dates: start: 20200707, end: 20200906
  4. COSENTYX [Suspect]
     Active Substance: SECUKINUMAB
     Dosage: 200 MG, QD
     Route: 065
     Dates: start: 20200107
  5. CELECOXIB [Suspect]
     Active Substance: CELECOXIB
     Indication: Psoriatic arthropathy
     Dosage: 200 MG, QD
     Route: 065
     Dates: start: 20200107, end: 20200120
  6. CELECOXIB [Suspect]
     Active Substance: CELECOXIB
     Dosage: 200 MG, QD; 07-JAN-2020 00:00
     Route: 065
     Dates: end: 20200120
  7. ADALIMUMAB [Suspect]
     Active Substance: ADALIMUMAB
     Indication: Psoriatic arthropathy
     Route: 065
     Dates: start: 20201007, end: 20210511
  8. ADALIMUMAB [Suspect]
     Active Substance: ADALIMUMAB
     Route: 065
     Dates: start: 20210702, end: 20210728
  9. ADALIMUMAB [Suspect]
     Active Substance: ADALIMUMAB
     Route: 065
     Dates: end: 20210511
  10. ADALIMUMAB [Suspect]
     Active Substance: ADALIMUMAB
     Route: 065
     Dates: end: 20210728
  11. TREMFYA [Suspect]
     Active Substance: GUSELKUMAB
     Indication: Psoriatic arthropathy
     Route: 065
     Dates: start: 20210512, end: 20210701
  12. TREMFYA [Suspect]
     Active Substance: GUSELKUMAB
     Route: 065
     Dates: end: 20210701
  13. TALTZ [Suspect]
     Active Substance: IXEKIZUMAB
     Indication: Psoriatic arthropathy
     Route: 065
     Dates: start: 20210728, end: 20240731
  14. TALTZ [Suspect]
     Active Substance: IXEKIZUMAB
     Route: 065
     Dates: end: 20240731
  15. BIMZELX [Suspect]
     Active Substance: BIMEKIZUMAB-BKZX
     Indication: Psoriatic arthropathy
     Route: 065
     Dates: start: 20240731

REACTIONS (5)
  - Cholangitis [Recovered/Resolved]
  - Cholangitis [Recovered/Resolved]
  - Cholecystitis [Recovered/Resolved]
  - Cholecystitis acute [Recovered/Resolved]
  - Off label use [Unknown]
